FAERS Safety Report 17716474 (Version 2)
Quarter: 2020Q2

REPORT INFORMATION
  Report Type: Spontaneous
  Country: FR (occurrence: FR)
  Receive Date: 20200428
  Receipt Date: 20200508
  Transmission Date: 20200714
  Serious: Yes (Death, Hospitalization)
  Sender: FDA-Public Use
  Company Number: FR-ACCORD-179778

PATIENT
  Age: 14 Year
  Sex: Male
  Weight: 89 kg

DRUGS (7)
  1. AMSALYO [Suspect]
     Active Substance: AMSACRINE
     Indication: ACUTE MYELOID LEUKAEMIA
     Dosage: STRENGTH: 75 MG,100 MG/M2
     Route: 041
     Dates: start: 20151112, end: 20151115
  2. MITOXANTRONE [Suspect]
     Active Substance: MITOXANTRONE HYDROCHLORIDE
     Indication: ACUTE MYELOID LEUKAEMIA
     Route: 041
     Dates: start: 20150928, end: 20151002
  3. CYTARABINE/CYTARABINE HYDROCHLORIDE/CYTARABINE OCFOSFATE [Suspect]
     Active Substance: CYTARABINE
     Indication: ACUTE MYELOID LEUKAEMIA
     Route: 037
     Dates: start: 20150928, end: 20150928
  4. METHOTREXATE. [Suspect]
     Active Substance: METHOTREXATE
     Indication: ACUTE MYELOID LEUKAEMIA
     Route: 037
     Dates: start: 20150928, end: 20150928
  5. CYTARABINE/CYTARABINE HYDROCHLORIDE/CYTARABINE OCFOSFATE [Suspect]
     Active Substance: CYTARABINE
     Indication: ACUTE MYELOID LEUKAEMIA
     Dosage: SEE COMMENT
     Route: 041
     Dates: start: 20150928, end: 20160120
  6. KIDROLASE [Suspect]
     Active Substance: ASPARAGINASE
     Indication: ACUTE MYELOID LEUKAEMIA
     Dosage: STRENGTH:10,000 IU,120000UI/M2 AU TOTAL
     Route: 030
     Dates: start: 20160112, end: 20160121
  7. ETOPOPHOS [Suspect]
     Active Substance: ETOPOSIDE PHOSPHATE
     Indication: ACUTE MYELOID LEUKAEMIA
     Dosage: STRENGTH:100 MG  LYOPHILISATE FOR PARENTERAL USE,150 MG / M2 ON DAY 3 DAY 4 DAY 5
     Route: 042
     Dates: start: 20151215, end: 20151218

REACTIONS (2)
  - Ejection fraction decreased [Recovered/Resolved]
  - Acute lymphocytic leukaemia [Fatal]

NARRATIVE: CASE EVENT DATE: 20151207
